FAERS Safety Report 25098596 (Version 1)
Quarter: 2025Q1

REPORT INFORMATION
  Report Type: Spontaneous
  Country: NO (occurrence: NO)
  Receive Date: 20250320
  Receipt Date: 20250320
  Transmission Date: 20250408
  Serious: Yes (Other)
  Sender: ROCHE
  Company Number: None

PATIENT
  Age: 34 Year
  Sex: Female

DRUGS (1)
  1. MABTHERA [Suspect]
     Active Substance: RITUXIMAB
     Indication: Multiple sclerosis
     Dosage: 500MG EVERY SIX MONTHS?CONTINUED USE OF MEDICINAL PRODUCT
     Route: 042
     Dates: start: 20190724

REACTIONS (1)
  - Cervix carcinoma stage 0 [Recovered/Resolved with Sequelae]

NARRATIVE: CASE EVENT DATE: 20240221
